FAERS Safety Report 8303868-1 (Version None)
Quarter: 2012Q2

REPORT INFORMATION
  Report Type: 
  Country: None (occurrence: None)
  Receive Date: 20120423
  Receipt Date: 20120418
  Transmission Date: 20120825
  Serious: Yes (Life-Threatening, Other)
  Sender: FDA-Public Use
  Company Number: MX-SANOFI-AVENTIS-2012SA027317

PATIENT
  Age: 83 Year
  Sex: Female

DRUGS (1)
  1. ATENOLOL AND CHLORTHALIDONE [Suspect]
     Route: 048

REACTIONS (4)
  - PULMONARY EMBOLISM [None]
  - URINARY TRACT INFECTION [None]
  - FALL [None]
  - ANAEMIA [None]
